FAERS Safety Report 8588094-3 (Version None)
Quarter: 2012Q3

REPORT INFORMATION
  Report Type: 
  Country: None (occurrence: None)
  Receive Date: 20120813
  Receipt Date: 20120806
  Transmission Date: 20120928
  Serious: No
  Sender: FDA-Public Use
  Company Number: US-PFIZER INC-2012192164

PATIENT
  Age: 40 Year
  Sex: Female
  Weight: 61.224 kg

DRUGS (6)
  1. LYRICA [Suspect]
     Indication: MYOFASCIAL PAIN SYNDROME
  2. LYRICA [Suspect]
     Indication: FIBROMYALGIA
     Dosage: 225MG IN THE MORNING AND 300MG IN THE NIGHT
     Dates: start: 20090101, end: 20100101
  3. LYRICA [Suspect]
     Indication: FATIGUE
     Dosage: UNK
     Dates: start: 20110101
  4. SAVELLA [Concomitant]
     Indication: FIBROMYALGIA
     Dosage: 12.5 MG, DAILY
  5. LYRICA [Suspect]
     Indication: NERVE INJURY
  6. SAVELLA [Concomitant]
     Indication: SLEEP DISORDER
     Dosage: 25 MG, DAILY

REACTIONS (2)
  - PAIN [None]
  - HEADACHE [None]
